FAERS Safety Report 19538258 (Version 1)
Quarter: 2021Q3

REPORT INFORMATION
  Report Type: Spontaneous
  Country: US (occurrence: US)
  Receive Date: 20210714
  Receipt Date: 20210714
  Transmission Date: 20211014
  Serious: No
  Sender: FDA-Public Use
  Company Number: None

PATIENT
  Age: 26 Year
  Sex: Female
  Weight: 61.24 kg

DRUGS (6)
  1. ADDERALL [Concomitant]
     Active Substance: AMPHETAMINE ASPARTATE\AMPHETAMINE SULFATE\DEXTROAMPHETAMINE SACCHARATE\DEXTROAMPHETAMINE SULFATE
  2. THYROID SUPPLEMENT [Concomitant]
  3. MIRENA [Suspect]
     Active Substance: LEVONORGESTREL
     Dates: start: 20210302
  4. LIVER SUPPLEMENT [Concomitant]
     Active Substance: PHENOL
  5. VITAMIN C [Concomitant]
     Active Substance: ASCORBIC ACID
  6. PROBIOTIC [Concomitant]
     Active Substance: PROBIOTICS NOS

REACTIONS (1)
  - Libido increased [None]

NARRATIVE: CASE EVENT DATE: 20210316
